FAERS Safety Report 5392383-3 (Version None)
Quarter: 2007Q3

REPORT INFORMATION
  Report Type: 
  Country: None (occurrence: None)
  Receive Date: 20070720
  Receipt Date: 20070716
  Transmission Date: 20080115
  Serious: Yes (Other)
  Sender: FDA-Public Use
  Company Number: A0664978A

PATIENT
  Age: 56 Year
  Sex: Male

DRUGS (2)
  1. COREG [Suspect]
     Indication: DRUG USE FOR UNKNOWN INDICATION
     Dosage: 50MG UNKNOWN
     Route: 048
  2. UNSPECIFIED MEDICATION [Concomitant]

REACTIONS (1)
  - RENAL FAILURE CHRONIC [None]
